FAERS Safety Report 19483865 (Version 1)
Quarter: 2021Q3

REPORT INFORMATION
  Report Type: Spontaneous
  Country: IN (occurrence: IN)
  Receive Date: 20210701
  Receipt Date: 20210701
  Transmission Date: 20211014
  Serious: Yes (Death)
  Sender: FDA-Public Use
  Company Number: IN-PFIZER INC-2021003887

PATIENT
  Age: 47 Year
  Sex: Male
  Weight: 65 kg

DRUGS (1)
  1. SUTENT [Suspect]
     Active Substance: SUNITINIB MALATE
     Indication: METASTATIC RENAL CELL CARCINOMA
     Dosage: 37.5 MG, CYCLIC (0?1?0 X 2 MONTHS)

REACTIONS (5)
  - Vomiting [Unknown]
  - Diarrhoea [Unknown]
  - Mouth ulceration [Unknown]
  - Death [Fatal]
  - Heart rate irregular [Unknown]

NARRATIVE: CASE EVENT DATE: 20210310
